FAERS Safety Report 8801752 (Version 1)
Quarter: 2012Q4

REPORT INFORMATION
  Report Type: 
  Country: US (occurrence: US)
  Receive Date: 20120921
  Receipt Date: 20120921
  Transmission Date: 20130627
  Serious: No
  Sender: FDA-Public Use
  Company Number: US-PFIZER INC-2012230381

PATIENT
  Age: 57 Year
  Sex: Female
  Weight: 99.77 kg

DRUGS (7)
  1. ZITHROMAX [Suspect]
     Dosage: UNK
  2. XANAX [Concomitant]
     Indication: ANXIETY
     Dosage: UNK
  3. ALPRAZOLAM [Concomitant]
     Indication: ANXIETY
     Dosage: 2 mg, UNK
  4. METHADONE [Concomitant]
     Indication: PAIN
     Dosage: two of 10mg, every 8 hours
  5. OMEPRAZOLE [Concomitant]
     Dosage: 20 mg, 1x/day
  6. LEVOTHYROXINE [Concomitant]
     Dosage: UNK, 1x/day
  7. LISINOPRIL [Concomitant]
     Dosage: 40 mg, 1x/day

REACTIONS (1)
  - Drug hypersensitivity [Unknown]
